FAERS Safety Report 26214375 (Version 1)
Quarter: 2025Q4

REPORT INFORMATION
  Report Type: Spontaneous
  Country: BR (occurrence: BR)
  Receive Date: 20251230
  Receipt Date: 20251230
  Transmission Date: 20260118
  Serious: Yes (Other)
  Sender: NOVARTIS
  Company Number: BR-SANDOZ-SDZ2025BR069533

PATIENT
  Sex: Female

DRUGS (11)
  1. SIMVASTATIN [Suspect]
     Active Substance: SIMVASTATIN
     Indication: Product used for unknown indication
     Dosage: 3 DOSAGE FORM, QD, (3 TABLET 1 TIME A DAY
     Route: 065
     Dates: start: 202304
  2. SIMVASTATIN [Suspect]
     Active Substance: SIMVASTATIN
     Dosage: 2 DOSAGE FORM, QD, (2 TABLETS ONCE A DAY
     Route: 065
  3. SIMVASTATIN [Suspect]
     Active Substance: SIMVASTATIN
     Dosage: 1 DOSAGE FORM, 21D, (1 TABLET A DAY, FOR 21 DAYS,
     Route: 065
  4. ANASTROZOLE [Suspect]
     Active Substance: ANASTROZOLE
     Indication: Product used for unknown indication
     Dosage: UNK
     Route: 065
  5. RIBOCICLIB [Suspect]
     Active Substance: RIBOCICLIB
     Indication: Product used for unknown indication
     Dosage: 2 DF
     Route: 065
  6. RIBOCICLIB [Suspect]
     Active Substance: RIBOCICLIB
     Dosage: 1 DF
     Route: 065
  7. GABAPENTIN [Suspect]
     Active Substance: GABAPENTIN
     Indication: Product used for unknown indication
     Dosage: 300MG, QD (1 TABLET IN THE EVENING)
     Route: 065
  8. LEVOTHYROXINE SODIUM [Suspect]
     Active Substance: LEVOTHYROXINE SODIUM
     Indication: Product used for unknown indication
     Dosage: 100 MG, QD
     Route: 065
  9. ATENOLOL [Suspect]
     Active Substance: ATENOLOL
     Indication: Product used for unknown indication
     Dosage: 50 MG, QD, (50MG AFTER DINNER)
     Route: 065
  10. VITAMIN D [Suspect]
     Active Substance: VITAMIN D NOS
     Indication: Product used for unknown indication
     Dosage: 2 DOSAGE FORM, BID, (VITAMIN D MDK, 2 TABLETS, 1 MORNING AND 1 EVENING
     Route: 065
  11. VITAMIN D [Suspect]
     Active Substance: VITAMIN D NOS
     Dosage: VITAMIN D MDK, 2 TABLETS, 1 MORNING AND 1 EVENING
     Route: 065

REACTIONS (20)
  - Immunodeficiency [Unknown]
  - Pneumonitis [Unknown]
  - Faecaloma [Unknown]
  - Multiple sclerosis [Unknown]
  - Skin hyperpigmentation [Unknown]
  - Tooth disorder [Unknown]
  - Tooth infection [Unknown]
  - Wound [Recovering/Resolving]
  - Somnolence [Unknown]
  - Radiation injury [Unknown]
  - Nodule [Unknown]
  - Spondylitis [Unknown]
  - Liver disorder [Unknown]
  - Diverticulum intestinal [Unknown]
  - Cholelithiasis [Unknown]
  - Radiation injury [Unknown]
  - Pain [Unknown]
  - Somnolence [Unknown]
  - Sluggishness [Unknown]
  - Arthralgia [Unknown]
